FAERS Safety Report 6095511-X (Version None)
Quarter: 2009Q1

REPORT INFORMATION
  Report Type: 
  Country: None (occurrence: None)
  Receive Date: 20090227
  Receipt Date: 20080416
  Transmission Date: 20090719
  Serious: Yes (Other)
  Sender: FDA-Public Use
  Company Number: A0723195A

PATIENT
  Age: 18 Year
  Sex: Male

DRUGS (4)
  1. LAMICTAL [Suspect]
     Indication: EPILEPSY
     Route: 048
     Dates: end: 20080401
  2. BETASERON [Concomitant]
  3. CELLCEPT [Concomitant]
  4. KEPPRA [Concomitant]

REACTIONS (1)
  - LEUKOPENIA [None]
